FAERS Safety Report 14193769 (Version 1)
Quarter: 2017Q4

REPORT INFORMATION
  Report Type: Spontaneous
  Country: IN (occurrence: IN)
  Receive Date: 20171115
  Receipt Date: 20171115
  Transmission Date: 20180321
  Serious: Yes (Other)
  Sender: FDA-Public Use
  Company Number: IN-PFM-2017-10441

PATIENT

DRUGS (1)
  1. NAVELBINE [Suspect]
     Active Substance: VINORELBINE TARTRATE
     Indication: BREAST CANCER METASTATIC
     Dosage: 10 MG 4 VIALS (DOSE 40 MG)
     Route: 042

REACTIONS (1)
  - Coombs positive haemolytic anaemia [Unknown]
